FAERS Safety Report 15265635 (Version 4)
Quarter: 2019Q2

REPORT INFORMATION
  Report Type: Spontaneous
  Country: US (occurrence: US)
  Receive Date: 20180810
  Receipt Date: 20190606
  Transmission Date: 20190711
  Serious: Yes (Other)
  Sender: FDA-Public Use
  Company Number: US-009507513-1808USA001803

PATIENT
  Age: 24 Year
  Sex: Female
  Weight: 68 kg

DRUGS (5)
  1. ALBUTEROL. [Concomitant]
     Active Substance: ALBUTEROL
  2. IMPLANON [Suspect]
     Active Substance: ETONOGESTREL
     Indication: CONTRACEPTION
     Dosage: 1 UNK
     Route: 059
     Dates: end: 20120618
  3. IMPLANON [Suspect]
     Active Substance: ETONOGESTREL
     Dosage: 1 ROD
     Route: 059
     Dates: start: 20120618, end: 20190306
  4. LEXAPRO [Concomitant]
     Active Substance: ESCITALOPRAM OXALATE
  5. LORAZEPAM. [Concomitant]
     Active Substance: LORAZEPAM

REACTIONS (11)
  - Complication associated with device [Recovered/Resolved]
  - Removal of foreign body [Recovered/Resolved]
  - Device dislocation [Recovered/Resolved]
  - Surgery [Unknown]
  - Incorrect product administration duration [Unknown]
  - Device difficult to use [Recovered/Resolved]
  - Amenorrhoea [Unknown]
  - Infertility [Not Recovered/Not Resolved]
  - Menorrhagia [Unknown]
  - Menstruation irregular [Not Recovered/Not Resolved]
  - Complication of device removal [Recovered/Resolved]

NARRATIVE: CASE EVENT DATE: 20120618
